FAERS Safety Report 4600102-0 (Version None)
Quarter: 2005Q1

REPORT INFORMATION
  Report Type: 
  Country: None (occurrence: None)
  Receive Date: 20050307
  Receipt Date: 20041222
  Transmission Date: 20050727
  Serious: Yes (Death, Life-Threatening, Hospitalization)
  Sender: FDA-Public Use
  Company Number: PHBS2004JP17294

PATIENT
  Age: 54 Year
  Sex: Female
  Weight: 42 kg

DRUGS (19)
  1. VINCRISTINE [Suspect]
     Dates: start: 20010510, end: 20010821
  2. SANDIMMUNE [Suspect]
     Indication: BONE MARROW TRANSPLANT
     Dosage: 90 MG/D
     Route: 041
     Dates: start: 20030219, end: 20030222
  3. ZETBULIN [Concomitant]
     Indication: BONE MARROW TRANSPLANT
     Dosage: 300 MG/D
     Route: 042
     Dates: start: 20021211, end: 20021215
  4. FLUDARABINE PHOSPHATE [Suspect]
     Indication: BONE MARROW TRANSPLANT
     Dosage: 30 MG/D
     Route: 042
     Dates: start: 20021212, end: 20021215
  5. ENDOXAN [Concomitant]
     Dosage: 400 MG/D
     Route: 042
     Dates: start: 20021212, end: 20021215
  6. DOXORUBICIN HCL [Suspect]
     Dates: start: 20010510, end: 20010821
  7. ETOPOSIDE [Suspect]
     Dates: start: 20010510, end: 20010821
  8. CYCLOPHOSPHAMIDE [Suspect]
     Dates: start: 20010510, end: 20010821
  9. PREDNISOLONE [Suspect]
     Dates: start: 20010521, end: 20010821
  10. LYMPHOGLOBULINE [Suspect]
  11. NEORAL [Suspect]
     Indication: BONE MARROW TRANSPLANT
     Dosage: 200 MG/D
     Route: 048
     Dates: start: 20030203, end: 20030204
  12. NEORAL [Suspect]
     Dosage: 160 MG/D
     Route: 048
     Dates: start: 20030205, end: 20030206
  13. NEORAL [Suspect]
     Dosage: 120 MG/D
     Route: 048
     Dates: start: 20030207, end: 20030214
  14. NEORAL [Suspect]
     Dosage: 180 MG/D
     Route: 048
     Dates: start: 20030215, end: 20030218
  15. NEORAL [Suspect]
     Dates: start: 20010210, end: 20010827
  16. NEORAL [Suspect]
     Dates: start: 20020213, end: 20020424
  17. NEORAL [Suspect]
     Dates: start: 20020618
  18. NEORAL [Suspect]
     Dosage: 240 MG/D
     Route: 048
     Dates: start: 20030130, end: 20030202
  19. METHOTREXATE [Concomitant]
     Indication: BONE MARROW TRANSPLANT

REACTIONS (23)
  - AGITATION [None]
  - ANXIETY [None]
  - APLASTIC ANAEMIA [None]
  - B-CELL LYMPHOMA RECURRENT [None]
  - BLOOD IRON INCREASED [None]
  - BLOOD PRESSURE DECREASED [None]
  - BONE MARROW DEPRESSION [None]
  - BONE MARROW DISORDER [None]
  - COLD AGGLUTININS POSITIVE [None]
  - CYTOMEGALOVIRUS ANTIBODY POSITIVE [None]
  - CYTOMEGALOVIRUS ANTIGEN POSITIVE [None]
  - DRUG INEFFECTIVE [None]
  - DRUG INTERACTION [None]
  - ENCEPHALITIS [None]
  - HEART RATE INCREASED [None]
  - IDIOPATHIC THROMBOCYTOPENIC PURPURA [None]
  - LIVER DISORDER [None]
  - MYALGIA [None]
  - PO2 DECREASED [None]
  - PYREXIA [None]
  - RESTLESSNESS [None]
  - UNRESPONSIVE TO PAIN STIMULI [None]
  - VENTRICULAR EXTRASYSTOLES [None]
